FAERS Safety Report 4911201-8 (Version None)
Quarter: 2006Q1

REPORT INFORMATION
  Report Type: 
  Country: None (occurrence: None)
  Receive Date: 20060209
  Receipt Date: 20060127
  Transmission Date: 20060701
  Serious: Yes (Hospitalization)
  Sender: FDA-Public Use
  Company Number: 2006015779

PATIENT
  Age: 19 Year
  Sex: Female
  Weight: 58 kg

DRUGS (2)
  1. SULFASALAZINE [Suspect]
     Indication: ILL-DEFINED DISORDER
     Dosage: 2 GRAM (2 GRAM, 1 IN 1 D), ORAL
     Route: 048
     Dates: start: 20051202, end: 20051226
  2. FERROUS FUMARATE [Concomitant]

REACTIONS (7)
  - CHOLESTASIS [None]
  - CYTOLYTIC HEPATITIS [None]
  - DRUG RASH WITH EOSINOPHILIA AND SYSTEMIC SYMPTOMS [None]
  - HUMAN HERPES VIRUS 6 SEROLOGY POSITIVE [None]
  - LEUKOCYTOSIS [None]
  - LYMPHADENOPATHY [None]
  - LYMPHOCYTOSIS [None]
